FAERS Safety Report 16591748 (Version 1)
Quarter: 2019Q3

REPORT INFORMATION
  Report Type: Report from Study
  Country: US (occurrence: US)
  Receive Date: 20190718
  Receipt Date: 20190718
  Transmission Date: 20191004
  Serious: No
  Sender: FDA-Public Use
  Company Number: PHEH2019US029631

PATIENT
  Sex: Female
  Weight: 45.81 kg

DRUGS (1)
  1. ILARIS [Suspect]
     Active Substance: CANAKINUMAB
     Indication: PYREXIA
     Dosage: 4 MG/KG, Q4W
     Route: 058

REACTIONS (1)
  - Incorrect dose administered [Unknown]
